FAERS Safety Report 13243653 (Version 2)
Quarter: 2017Q1

REPORT INFORMATION
  Report Type: Report from Study
  Country: US (occurrence: US)
  Receive Date: 20170217
  Receipt Date: 20170318
  Transmission Date: 20170428
  Serious: Yes (Death)
  Sender: FDA-Public Use
  Company Number: PHEH2017US004794

PATIENT
  Sex: Female
  Weight: 81.63 kg

DRUGS (1)
  1. ENTRESTO [Suspect]
     Active Substance: SACUBITRIL\VALSARTAN
     Indication: CARDIAC FAILURE CONGESTIVE
     Dosage: 50 MG, BID
     Route: 048
     Dates: start: 20170105, end: 20170201

REACTIONS (3)
  - Hypertension [Fatal]
  - Cardiac failure congestive [Fatal]
  - Cardiovascular disorder [Fatal]
